FAERS Safety Report 8829204 (Version 1)
Quarter: 2012Q4

REPORT INFORMATION
  Report Type: 
  Country: CA (occurrence: CA)
  Receive Date: 20121008
  Receipt Date: 20121008
  Transmission Date: 20130627
  Serious: Yes (Other)
  Sender: FDA-Public Use
  Company Number: PHHY2008CA05466

PATIENT
  Sex: Female

DRUGS (1)
  1. SANDOSTATINA LAR [Suspect]
     Indication: NEUROENDOCRINE TUMOUR
     Dosage: 40 mg, QMO
     Route: 030
     Dates: start: 20071004, end: 20071101

REACTIONS (4)
  - Hepatic lesion [Unknown]
  - Decreased appetite [Unknown]
  - Nausea [Unknown]
  - Drug ineffective [Unknown]
